FAERS Safety Report 5391321-7 (Version None)
Quarter: 2007Q3

REPORT INFORMATION
  Report Type: 
  Country: None (occurrence: None)
  Receive Date: 20070719
  Receipt Date: 20070709
  Transmission Date: 20080115
  Serious: Yes (Hospitalization)
  Sender: FDA-Public Use
  Company Number: B0478170A

PATIENT
  Age: 52 Year
  Sex: Male

DRUGS (2)
  1. VALTREX [Suspect]
     Indication: DRUG USE FOR UNKNOWN INDICATION
     Dosage: 500MG TWICE PER DAY
     Route: 065
     Dates: start: 20070604, end: 20070608
  2. TEVETEN [Concomitant]
     Dates: start: 20061115, end: 20070604

REACTIONS (8)
  - BLOOD PRESSURE INCREASED [None]
  - EYE SWELLING [None]
  - HERPES VIRUS INFECTION [None]
  - HYPERSENSITIVITY [None]
  - LIP SWELLING [None]
  - OEDEMA MOUTH [None]
  - SWELLING FACE [None]
  - URTICARIA [None]
